FAERS Safety Report 7313209-4 (Version None)
Quarter: 2011Q1

REPORT INFORMATION
  Report Type: 
  Country: None (occurrence: None)
  Receive Date: 20110225
  Receipt Date: 20110215
  Transmission Date: 20110831
  Serious: Yes (Hospitalization, Other)
  Sender: FDA-Public Use
  Company Number: US-ELI_LILLY_AND_COMPANY-US201011000076

PATIENT
  Sex: Female
  Weight: 43.537 kg

DRUGS (8)
  1. POTASSIUM GLUCONATE TAB [Concomitant]
  2. VITAMIN D [Concomitant]
  3. VESICARE [Concomitant]
  4. VITAMIN B-12 [Concomitant]
  5. FORTEO [Suspect]
     Indication: OSTEOPOROSIS
     Dosage: 20 UG, DAILY (1/D)
     Route: 058
     Dates: start: 20100726
  6. SYMBICORT [Concomitant]
  7. ASTEPRO [Concomitant]
  8. FOSAMAX [Concomitant]

REACTIONS (2)
  - PELVIC FRACTURE [None]
  - FALL [None]
